FAERS Safety Report 24950633 (Version 1)
Quarter: 2025Q1

REPORT INFORMATION
  Report Type: Spontaneous
  Country: US (occurrence: US)
  Receive Date: 20250210
  Receipt Date: 20250210
  Transmission Date: 20250409
  Serious: Yes (Other)
  Sender: BAYER HEALTHCARE LLC
  Company Number: US-BAYER-2025A014425

PATIENT

DRUGS (1)
  1. MILK OF MAGNESIA CHERRY [Suspect]
     Active Substance: MAGNESIUM HYDROXIDE

REACTIONS (6)
  - Renal injury [None]
  - Respiratory disorder [Unknown]
  - Abdominal pain [Unknown]
  - Nausea [Unknown]
  - Haemorrhage [Unknown]
  - Back pain [Unknown]
